FAERS Safety Report 24277219 (Version 1)
Quarter: 2024Q3

REPORT INFORMATION
  Report Type: Spontaneous
  Country: IN (occurrence: IN)
  Receive Date: 20240903
  Receipt Date: 20240903
  Transmission Date: 20241017
  Serious: Yes (Life-Threatening, Hospitalization)
  Sender: MYLAN
  Company Number: IN-MYLANLABS-2024M1080439

PATIENT
  Age: 32 Year
  Sex: Male

DRUGS (4)
  1. ALPRAZOLAM [Suspect]
     Active Substance: ALPRAZOLAM
     Indication: Product used for unknown indication
     Dosage: 40 MILLIGRAM
     Route: 048
  2. ACETAMINOPHEN [Suspect]
     Active Substance: ACETAMINOPHEN
     Indication: Pyrexia
     Dosage: UNK
     Route: 042
  3. INSULIN GLARGINE [Suspect]
     Active Substance: INSULIN GLARGINE
     Indication: Product used for unknown indication
     Dosage: UNK
     Route: 065
  4. ESCITALOPRAM [Concomitant]
     Active Substance: ESCITALOPRAM OXALATE
     Indication: Depression
     Dosage: 10 MILLIGRAM
     Route: 065

REACTIONS (3)
  - Coma [Recovering/Resolving]
  - Overdose [Recovering/Resolving]
  - Therapy non-responder [Unknown]
